FAERS Safety Report 9927761 (Version 1)
Quarter: 2014Q1

REPORT INFORMATION
  Report Type: Report from Study
  Country: CA (occurrence: CA)
  Receive Date: 20140227
  Receipt Date: 20140227
  Transmission Date: 20141002
  Serious: Yes (Death)
  Sender: FDA-Public Use
  Company Number: CA-BRISTOL-MYERS SQUIBB COMPANY-20302444

PATIENT
  Age: 69 Year
  Sex: Female

DRUGS (4)
  1. ORENCIA [Suspect]
     Indication: RHEUMATOID ARTHRITIS
     Dosage: 1DF=750 UNIT NOS
     Dates: start: 2012
  2. VERAPAMIL [Concomitant]
  3. ZOPICLONE [Concomitant]
  4. AMITRIPTYLINE [Concomitant]

REACTIONS (1)
  - Death [Fatal]
